FAERS Safety Report 13891156 (Version 3)
Quarter: 2017Q3

REPORT INFORMATION
  Report Type: Report from Study
  Country: US (occurrence: US)
  Receive Date: 20170822
  Receipt Date: 20170907
  Transmission Date: 20171127
  Serious: Yes (Hospitalization)
  Sender: FDA-Public Use
  Company Number: US-PFIZER INC-2017351066

PATIENT
  Age: 63 Year
  Sex: Female
  Weight: 66 kg

DRUGS (5)
  1. GEMCITABINE HYDROCHLORIDE. [Suspect]
     Active Substance: GEMCITABINE HYDROCHLORIDE
     Indication: CHEMOTHERAPY
     Dosage: 1000 MG/M2, CYCLIC
     Dates: start: 20170713
  2. ABRAXANE [Concomitant]
     Active Substance: PACLITAXEL
     Indication: CHEMOTHERAPY
     Dosage: 125 MG/M2, CYCLIC
     Dates: start: 20170713
  3. GEMCITABINE HYDROCHLORIDE. [Suspect]
     Active Substance: GEMCITABINE HYDROCHLORIDE
     Dosage: 1000 MG/M2, CYCLIC
     Dates: start: 20170727
  4. PHOTOFRIN [Suspect]
     Active Substance: PORFIMER SODIUM
     Indication: PANCREATIC CARCINOMA
     Dosage: AT A TOTAL DOSE OF 136.80 MG
     Route: 042
     Dates: start: 20170619
  5. ABRAXANE [Concomitant]
     Active Substance: PACLITAXEL
     Dosage: 125 MG/M2, CYCLIC
     Dates: start: 20170727

REACTIONS (5)
  - Dizziness [Recovered/Resolved]
  - Hallucination [Recovered/Resolved]
  - Pyrexia [Recovered/Resolved]
  - Dehydration [Recovered/Resolved]
  - Dysarthria [Recovered/Resolved]

NARRATIVE: CASE EVENT DATE: 20170729
